FAERS Safety Report 15226533 (Version 14)
Quarter: 2018Q4

REPORT INFORMATION
  Report Type: Spontaneous
  Country: FR (occurrence: FR)
  Receive Date: 20180801
  Receipt Date: 20181214
  Transmission Date: 20190204
  Serious: Yes (Hospitalization, Other)
  Sender: FDA-Public Use
  Company Number: FR-PFIZER INC-2018306110

PATIENT
  Age: 62 Year
  Sex: Female
  Weight: 81 kg

DRUGS (59)
  1. ALTIZIDE/SPIRONOLACTONE [Suspect]
     Active Substance: ALTHIAZIDE\SPIRONOLACTONE
     Dosage: 1 DF, QD
     Dates: start: 20180527
  2. ATORVASTATIN MYLAN [Suspect]
     Active Substance: ATORVASTATIN
     Indication: PAIN IN EXTREMITY
     Dosage: 10 MG, 1X/DAY
     Dates: start: 20160301, end: 20160317
  3. FLUVASTATIN MYLAN [Suspect]
     Active Substance: FLUVASTATIN SODIUM
     Dosage: 1 DF, QD
     Route: 065
     Dates: start: 20110201, end: 20160517
  4. ACEBUTOLOL [Suspect]
     Active Substance: ACEBUTOLOL
     Dosage: UNK
     Route: 048
     Dates: start: 20121105
  5. ACEBUTOLOL [Suspect]
     Active Substance: ACEBUTOLOL
     Dosage: 0.5 DF, QD
     Route: 048
     Dates: start: 20180527
  6. PARACETAMOL + TRAMADOL [Suspect]
     Active Substance: ACETAMINOPHEN\TRAMADOL
     Dosage: 9 DF, 1X/DAY
     Dates: start: 20110816
  7. SECTRAL [Suspect]
     Active Substance: ACEBUTOLOL HYDROCHLORIDE
     Indication: HYPERTENSION
     Dosage: 0.5 DF, QD
     Route: 048
  8. FORTIMEL COMPACT PROTEIN [Concomitant]
     Indication: PROTEIN DEFICIENCY
     Dosage: 125 ML, QD
     Route: 048
  9. MEDROL [Concomitant]
     Active Substance: METHYLPREDNISOLONE
     Indication: IMMUNOSUPPRESSION
     Dosage: UNK
     Route: 065
  10. KARDEGIC [Concomitant]
     Active Substance: ASPIRIN DL-LYSINE
     Indication: CARDIAC DISORDER
     Dosage: 1 DF, QD
     Route: 065
  11. OMEPRAZOLE. [Concomitant]
     Active Substance: OMEPRAZOLE
     Dosage: UNK
     Route: 065
     Dates: start: 20160331
  12. RAMIPRIL. [Suspect]
     Active Substance: RAMIPRIL
     Dosage: 1 DF, QD
     Route: 048
     Dates: start: 20180527
  13. ATORVASTATIN MYLAN [Suspect]
     Active Substance: ATORVASTATIN
     Dosage: 1 DF, 1X/DAY
     Dates: start: 20160730
  14. FLUVASTATIN MYLAN [Suspect]
     Active Substance: FLUVASTATIN SODIUM
     Dosage: UNK
     Dates: start: 20160730
  15. APRANAX [Suspect]
     Active Substance: NAPROXEN
     Indication: BACK PAIN
     Dosage: UNK UNK, 1X/DAY
     Route: 048
     Dates: start: 20160730
  16. NAPROXEN SODIUM. [Suspect]
     Active Substance: NAPROXEN SODIUM
     Indication: NAUSEA
     Dosage: 1 DF, 1X/DAY
     Route: 065
     Dates: start: 20160322, end: 20160730
  17. LANSOPRAZOLE. [Concomitant]
     Active Substance: LANSOPRAZOLE
     Indication: GENERAL SYMPTOM
     Dosage: 30 MG, 1X/DAY
     Route: 048
  18. ATORVASTATIN MYLAN [Suspect]
     Active Substance: ATORVASTATIN
     Dosage: 20 MG, 1X/DAY
     Dates: start: 20150922
  19. NAPROXEN SODIUM. [Suspect]
     Active Substance: NAPROXEN SODIUM
     Indication: FATIGUE
     Dosage: 1 DF, UNK
     Dates: start: 20160311
  20. ANTALNOX [Suspect]
     Active Substance: NAPROXEN SODIUM
     Dosage: 1 DF, 1X/DAY
     Dates: start: 20160322, end: 20160730
  21. TANGANIL [Suspect]
     Active Substance: ACETYLLEUCINE
     Indication: DIZZINESS
     Dosage: 2 DF, 2X/DAY
     Route: 048
  22. ACETYLLEUCINE [Suspect]
     Active Substance: ACETYLLEUCINE
     Indication: DIZZINESS
     Dosage: 2 DF, BID
     Route: 065
  23. BACTRIM [Concomitant]
     Active Substance: SULFAMETHOXAZOLE\TRIMETHOPRIM
     Indication: INFECTION
     Dosage: 1 DF, UNK
     Route: 048
  24. OFLOCET [Concomitant]
     Active Substance: OFLOXACIN
     Indication: URINARY TRACT INFECTION
     Dosage: UNK (5 DAYS)
  25. RAMIPRIL. [Suspect]
     Active Substance: RAMIPRIL
     Dosage: 1 DF, QD
     Route: 048
     Dates: start: 20121105
  26. NAPROXEN SODIUM. [Suspect]
     Active Substance: NAPROXEN SODIUM
     Dosage: UNK
     Dates: start: 20160730
  27. ANTALNOX [Suspect]
     Active Substance: NAPROXEN SODIUM
     Dosage: UNK
     Route: 065
     Dates: start: 20160311
  28. IXPRIM [Suspect]
     Active Substance: ACETAMINOPHEN\TRAMADOL HYDROCHLORIDE
     Indication: BACK PAIN
     Dosage: 3 DF, THREE TIMES A DAY
     Route: 048
     Dates: start: 20110816
  29. ACEBUTOLOL WINTHROP [Suspect]
     Active Substance: ACEBUTOLOL HYDROCHLORIDE
     Dosage: UNK
     Dates: start: 20121105
  30. ADVAGRAF [Concomitant]
     Active Substance: TACROLIMUS
     Indication: IMMUNOSUPPRESSION
     Dosage: 6 MG, AT 08:00
     Route: 048
  31. OFLOXACIN HYDROCHLORIDE [Concomitant]
     Active Substance: OFLOXACIN HYDROCHLORIDE
     Indication: URINARY TRACT INFECTION
     Dosage: UNK
     Route: 065
  32. CELLCEPT [Concomitant]
     Active Substance: MYCOPHENOLATE MOFETIL\MYCOPHENOLATE MOFETIL HYDROCHLORIDE
     Indication: IMMUNOSUPPRESSION
     Dosage: 2 DF, QD
     Route: 065
  33. VOGALENE [Concomitant]
     Active Substance: METOPIMAZINE
     Dosage: UNK
     Route: 065
     Dates: start: 20160331
  34. ALDACTAZINE [Suspect]
     Active Substance: ALTHIAZIDE\SPIRONOLACTONE
     Indication: HYPERTENSION
     Dosage: 1 DF, QD
     Route: 048
     Dates: start: 20180527
  35. ALTIZIDE/SPIRONOLACTONE [Suspect]
     Active Substance: ALTHIAZIDE\SPIRONOLACTONE
     Indication: CARDIAC DISORDER
     Dosage: 1 DF, QD
     Route: 065
     Dates: start: 20160321
  36. APRANAX [Suspect]
     Active Substance: NAPROXEN
     Indication: FATIGUE
     Dosage: 1 UNK
     Dates: start: 20160311
  37. APRANAX [Suspect]
     Active Substance: NAPROXEN
     Indication: NAUSEA
     Dosage: 1 DF, QD
     Route: 065
     Dates: start: 20160322, end: 20160730
  38. APRANAX [Suspect]
     Active Substance: NAPROXEN
     Dosage: 1 DF, 1X/DAY
     Dates: start: 20160321
  39. PARACETAMOL [Suspect]
     Active Substance: ACETAMINOPHEN
     Indication: BACK PAIN
     Dosage: 3 DF, QD
     Route: 065
     Dates: start: 20110816
  40. SECTRAL [Suspect]
     Active Substance: ACEBUTOLOL HYDROCHLORIDE
     Indication: HYPERTENSION
  41. ANTALNOX [Suspect]
     Active Substance: NAPROXEN SODIUM
     Dosage: 1 DF, 1X/DAY
     Route: 065
     Dates: start: 20160730
  42. LERCANIDIPINE HYDROCHLORIDE [Suspect]
     Active Substance: LERCANIDIPINE HYDROCHLORIDE
     Dosage: 1 DF, DAILY
     Route: 048
     Dates: start: 20180527
  43. PROGRAF [Concomitant]
     Active Substance: TACROLIMUS\TACROLIMUS ANHYDROUS
     Indication: IMMUNOSUPPRESSION
     Dosage: UNK
     Route: 065
  44. CELLCEPT [Concomitant]
     Active Substance: MYCOPHENOLATE MOFETIL\MYCOPHENOLATE MOFETIL HYDROCHLORIDE
     Dosage: DF, BID (2 TABLETS AT 08:00, 20:00 (IE 1G MORNING AND EVENING)
  45. CALCIUM POLYSTYRENE SULFONATE [Concomitant]
     Active Substance: CALCIUM POLYSTYRENE SULFONATE
     Indication: GENERAL SYMPTOM
     Dosage: 1 SPOON IN THE MORNING AND IN THE EVENING,
     Route: 065
  46. ATORVASTATIN CALCIUM. [Suspect]
     Active Substance: ATORVASTATIN CALCIUM
     Dosage: 10 MG, QD
     Route: 065
     Dates: start: 20160301, end: 20160517
  47. ATORVASTATIN CALCIUM. [Suspect]
     Active Substance: ATORVASTATIN CALCIUM
     Dosage: 1 DF, QD
     Route: 065
     Dates: start: 20160730
  48. MELOXICAM BIOGARAN [Suspect]
     Active Substance: MELOXICAM
     Dosage: UNK
     Route: 065
     Dates: start: 201603
  49. ACEBUTOLOL WINTHROP [Suspect]
     Active Substance: ACEBUTOLOL HYDROCHLORIDE
     Dosage: 0.5 DF, 1X/DAY
     Dates: start: 20180527
  50. SECTRAL [Suspect]
     Active Substance: ACEBUTOLOL HYDROCHLORIDE
     Indication: CARDIAC DISORDER
  51. JANUVIA [Concomitant]
     Active Substance: SITAGLIPTIN PHOSPHATE
     Indication: CARDIAC DISORDER
     Dosage: 1 DF, QD
     Route: 065
  52. TACROLIMUS. [Concomitant]
     Active Substance: TACROLIMUS
     Indication: IMMUNOSUPPRESSION
  53. ALTIZIDE/SPIRONOLACTONE [Suspect]
     Active Substance: ALTHIAZIDE\SPIRONOLACTONE
     Indication: HYPERTENSION
     Dosage: 1 DF, DAILY
     Route: 048
     Dates: start: 20130301
  54. ATORVASTATIN CALCIUM. [Suspect]
     Active Substance: ATORVASTATIN CALCIUM
     Dosage: 20 MG, QD
     Route: 065
     Dates: start: 20150922
  55. MELOXICAM BIOGARAN [Suspect]
     Active Substance: MELOXICAM
     Dosage: 1 DF, 1X/DAY
     Route: 065
     Dates: start: 20160301
  56. ACEBUTOLOL [Suspect]
     Active Substance: ACEBUTOLOL
     Dosage: 0.5 DF, QD (HALF TABLET ON MORNING)
     Route: 048
  57. NAPROXEN SODIUM. [Suspect]
     Active Substance: NAPROXEN SODIUM
     Indication: BACK PAIN
     Dosage: 1 DF, 1X/DAY
     Dates: start: 20160730
  58. RESIKALI [Concomitant]
     Active Substance: CALCIUM POLYSTYRENE SULFONATE
     Indication: GENERAL SYMPTOM
     Dosage: 2 UNK, QD
     Route: 065
  59. CHOLECALCIFEROL [Concomitant]
     Active Substance: CHOLECALCIFEROL
     Dosage: UNK

REACTIONS (5)
  - Sleep apnoea syndrome [Unknown]
  - Hepatitis acute [Unknown]
  - Gastrointestinal disorder [Unknown]
  - Jaundice [Unknown]
  - Hepatic necrosis [Unknown]

NARRATIVE: CASE EVENT DATE: 201603
